FAERS Safety Report 10659262 (Version 3)
Quarter: 2015Q1

REPORT INFORMATION
  Report Type: Report from Study
  Country: US (occurrence: US)
  Receive Date: 20141217
  Receipt Date: 20150123
  Transmission Date: 20150720
  Serious: Yes (Hospitalization)
  Sender: FDA-Public Use
  Company Number: US-AMGEN-USASL2014097154

PATIENT
  Age: 78 Year
  Sex: Female
  Weight: 62 kg

DRUGS (25)
  1. ACYCLOVIR                          /00587301/ [Concomitant]
     Active Substance: ACYCLOVIR
     Indication: PRODUCT USED FOR UNKNOWN INDICATION
     Dosage: 200 MG, BID
     Route: 048
  2. CEPHALEXIN                         /00145501/ [Concomitant]
     Active Substance: CEPHALEXIN
     Indication: BACTERIAL INFECTION
     Dosage: 250 MG, Q8H
     Route: 048
  3. DEXAMETHASONE. [Concomitant]
     Active Substance: DEXAMETHASONE
     Indication: PRODUCT USED FOR UNKNOWN INDICATION
     Dosage: 0.5 MG, QD
     Route: 048
  4. LOVASTATIN. [Concomitant]
     Active Substance: LOVASTATIN
     Indication: PRODUCT USED FOR UNKNOWN INDICATION
     Dosage: 40 MG, QD
     Route: 048
  5. KYPROLIS [Suspect]
     Active Substance: CARFILZOMIB
     Indication: PLASMA CELL MYELOMA
     Dosage: UNK
     Route: 065
     Dates: end: 20141120
  6. ASCORBIC ACID. [Concomitant]
     Active Substance: ASCORBIC ACID
     Indication: PRODUCT USED FOR UNKNOWN INDICATION
     Dosage: 1000 MG, QD
     Route: 048
  7. VITAMIN D2 [Concomitant]
     Active Substance: ERGOCALCIFEROL
     Indication: PRODUCT USED FOR UNKNOWN INDICATION
     Dosage: 1.25 MG, QWK
     Route: 048
  8. ZADITOR                            /00495201/ [Concomitant]
     Indication: PRODUCT USED FOR UNKNOWN INDICATION
     Dosage: 0.025 %, Q8H
     Route: 047
  9. EXELON [Concomitant]
     Active Substance: RIVASTIGMINE TARTRATE
     Indication: PRODUCT USED FOR UNKNOWN INDICATION
     Dosage: 1 UNIT, QD
     Route: 062
  10. SEVELAMER HYDROCHLORIDE [Concomitant]
     Active Substance: SEVELAMER HYDROCHLORIDE
     Indication: VITAMIN SUPPLEMENTATION
     Dosage: 800 MG, TID
     Route: 048
  11. LABETALOL [Concomitant]
     Active Substance: LABETALOL\LABETALOL HYDROCHLORIDE
     Indication: PRODUCT USED FOR UNKNOWN INDICATION
     Dosage: 300 MG, TID
     Route: 048
  12. NAMENDA [Concomitant]
     Active Substance: MEMANTINE HYDROCHLORIDE
     Indication: PRODUCT USED FOR UNKNOWN INDICATION
     Dosage: 28 MG, QD
     Route: 048
  13. JANUVIA [Concomitant]
     Active Substance: SITAGLIPTIN PHOSPHATE
     Indication: PRODUCT USED FOR UNKNOWN INDICATION
     Dosage: 50 MG, QD
     Route: 048
  14. ACETAMINOPHEN. [Concomitant]
     Active Substance: ACETAMINOPHEN
     Indication: PYREXIA
     Dosage: 325 MG, AS NECESSARY
     Route: 048
  15. BENZONATATE. [Concomitant]
     Active Substance: BENZONATATE
     Indication: COUGH
     Dosage: 100 MG, QID
     Route: 048
  16. SODIUM BICARBONATE. [Concomitant]
     Active Substance: SODIUM BICARBONATE
     Indication: PRODUCT USED FOR UNKNOWN INDICATION
     Dosage: 650 MG, QD
     Route: 048
  17. AMLODIPINE [Concomitant]
     Active Substance: AMLODIPINE BESYLATE
     Indication: PRODUCT USED FOR UNKNOWN INDICATION
     Dosage: 5 MG, QD
     Route: 048
  18. AZELASTINE [Concomitant]
     Active Substance: AZELASTINE
     Indication: PRODUCT USED FOR UNKNOWN INDICATION
     Dosage: 137 MUG, BID
     Route: 045
  19. PLAVIX [Concomitant]
     Active Substance: CLOPIDOGREL BISULFATE
     Indication: PRODUCT USED FOR UNKNOWN INDICATION
     Dosage: 75 MG, QD
     Route: 048
  20. DIFLUCAN [Concomitant]
     Active Substance: FLUCONAZOLE
     Indication: FUNGAL INFECTION
     Dosage: 100 MG, QD
     Route: 048
  21. ALBUTEROL W/IPRATROPIUM [Concomitant]
     Active Substance: ALBUTEROL\IPRATROPIUM
     Indication: PRODUCT USED FOR UNKNOWN INDICATION
     Dosage: 3 ML, Q4H
     Route: 045
  22. TIMOLOL [Concomitant]
     Active Substance: TIMOLOL
     Indication: PRODUCT USED FOR UNKNOWN INDICATION
     Dosage: 0.5 %, QD
     Route: 047
  23. BUMETANIDE. [Concomitant]
     Active Substance: BUMETANIDE
     Indication: FLUID RETENTION
     Dosage: 1 MG, QD
     Route: 048
  24. NEPHROCAPS                         /01801401/ [Concomitant]
     Indication: VITAMIN SUPPLEMENTATION
     Dosage: 1 UNIT, QD
     Route: 048
  25. VESICARE [Concomitant]
     Active Substance: SOLIFENACIN SUCCINATE
     Indication: PRODUCT USED FOR UNKNOWN INDICATION
     Dosage: 10 MG, QD
     Route: 048

REACTIONS (3)
  - Pneumonia [Unknown]
  - Chronic kidney disease [Unknown]
  - Respiratory failure [Unknown]

NARRATIVE: CASE EVENT DATE: 20141130
